FAERS Safety Report 25510679 (Version 1)
Quarter: 2025Q3

REPORT INFORMATION
  Report Type: Spontaneous
  Country: US (occurrence: US)
  Receive Date: 20250703
  Receipt Date: 20250703
  Transmission Date: 20251021
  Serious: Yes (Hospitalization)
  Sender: BIOMARIN
  Company Number: US-SA-2025SA184974

PATIENT
  Age: 1 Year
  Sex: Female

DRUGS (1)
  1. LARONIDASE [Suspect]
     Active Substance: LARONIDASE
     Indication: Mucopolysaccharidosis I
     Dosage: 8.7 (UNSPECIFIED UNITS) TOTAL DOSE ADMINISTERED, QW
     Dates: start: 202408

REACTIONS (2)
  - Bone marrow transplant [Recovering/Resolving]
  - Dermatitis contact [Unknown]
